FAERS Safety Report 21620418 (Version 1)
Quarter: 2022Q4

REPORT INFORMATION
  Report Type: Spontaneous
  Country: US (occurrence: None)
  Receive Date: 20221121
  Receipt Date: 20221121
  Transmission Date: 20230112
  Serious: Yes (Other)
  Sender: FDA-Public Use
  Company Number: 2022A374670

PATIENT
  Sex: Female

DRUGS (1)
  1. SAPHNELO [Suspect]
     Active Substance: ANIFROLUMAB-FNIA
     Indication: Chronic cutaneous lupus erythematosus
     Dosage: ONCE/SINGLE ADMINISTRATION
     Route: 042

REACTIONS (1)
  - Liver function test increased [Unknown]
